FAERS Safety Report 12479870 (Version 1)
Quarter: 2016Q2

REPORT INFORMATION
  Report Type: Spontaneous
  Country: US (occurrence: None)
  Receive Date: 20160617
  Receipt Date: 20160617
  Transmission Date: 20160815
  Serious: No
  Sender: FDA-Public Use
  Company Number: None

PATIENT
  Age: 46 Year
  Sex: Female

DRUGS (1)
  1. ENBREL [Suspect]
     Active Substance: ETANERCEPT
     Indication: PRODUCT USED FOR UNKNOWN INDICATION

REACTIONS (7)
  - Pruritus [None]
  - Dyspnoea [None]
  - Pneumonia [None]
  - Swelling [None]
  - Swelling face [None]
  - Depression [None]
  - Rheumatoid arthritis [None]

NARRATIVE: CASE EVENT DATE: 20160615
